FAERS Safety Report 12351539 (Version 2)
Quarter: 2016Q2

REPORT INFORMATION
  Report Type: Report from Study
  Country: BR (occurrence: BR)
  Receive Date: 20160510
  Receipt Date: 20160609
  Transmission Date: 20160815
  Serious: Yes (Hospitalization, Other)
  Sender: FDA-Public Use
  Company Number: PHHY2016BR062343

PATIENT
  Age: 32 Year
  Sex: Male
  Weight: 60 kg

DRUGS (1)
  1. GILENYA [Suspect]
     Active Substance: FINGOLIMOD HYDROCHLORIDE
     Indication: MULTIPLE SCLEROSIS
     Dosage: 0.5 MG, QD
     Route: 048

REACTIONS (16)
  - Influenza [Unknown]
  - Fall [Unknown]
  - Hypoaesthesia [Unknown]
  - Dysentery [Unknown]
  - Gait disturbance [Unknown]
  - Balance disorder [Unknown]
  - Colitis [Unknown]
  - Weight decreased [Unknown]
  - Temperature intolerance [Unknown]
  - Asthenia [Unknown]
  - Memory impairment [Unknown]
  - Impulsive behaviour [Unknown]
  - Pyrexia [Unknown]
  - Myopia [Unknown]
  - Diplopia [Unknown]
  - Eating disorder [Unknown]
